FAERS Safety Report 20605493 (Version 1)
Quarter: 2022Q1

REPORT INFORMATION
  Report Type: Report from Study
  Country: US (occurrence: US)
  Receive Date: 20220317
  Receipt Date: 20220317
  Transmission Date: 20220423
  Serious: Yes (Hospitalization)
  Sender: FDA-Public Use
  Company Number: US-ABBVIE-22K-163-4317026-00

PATIENT
  Sex: Female

DRUGS (1)
  1. VENCLEXTA [Suspect]
     Active Substance: VENETOCLAX
     Indication: Acute myeloid leukaemia
     Dosage: WITH FOOD AND A GLASS OF WATER
     Route: 048

REACTIONS (2)
  - Vomiting [Not Recovered/Not Resolved]
  - Full blood count abnormal [Not Recovered/Not Resolved]

NARRATIVE: CASE EVENT DATE: 20220101
